FAERS Safety Report 4381603-X (Version None)
Quarter: 2004Q2

REPORT INFORMATION
  Report Type: 
  Country: None (occurrence: None)
  Receive Date: 20040621
  Receipt Date: 20040616
  Transmission Date: 20050107
  Serious: Yes (Death)
  Sender: FDA-Public Use
  Company Number: PHRM2004FR02125

PATIENT
  Age: 32 Year
  Sex: Female
  Weight: 64 kg

DRUGS (6)
  1. SIMULECT [Suspect]
     Indication: RENAL TRANSPLANT
     Dosage: 20 MG DAILY
     Route: 042
     Dates: start: 20040316, end: 20040320
  2. LASILIX [Suspect]
     Dosage: 250 MG, 8QD
     Route: 042
     Dates: start: 20040316
  3. PREDNISONE [Suspect]
     Dosage: 500 MG DAILY
     Route: 042
     Dates: start: 20040316
  4. PROGRAF [Suspect]
     Route: 048
     Dates: start: 20040316, end: 20040321
  5. VANCOMYCIN [Suspect]
     Route: 042
     Dates: start: 20040316, end: 20040316
  6. CELLCEPT [Concomitant]
     Dosage: 2 G DAILY
     Route: 048
     Dates: start: 20040316

REACTIONS (8)
  - BLINDNESS [None]
  - CEREBRAL VENOUS THROMBOSIS [None]
  - FRONTAL LOBE EPILEPSY [None]
  - HEADACHE [None]
  - HEMIPLEGIA [None]
  - LEUKOENCEPHALOPATHY [None]
  - LIFE SUPPORT [None]
  - LOSS OF CONSCIOUSNESS [None]
